FAERS Safety Report 4434631-X (Version None)
Quarter: 2004Q3

REPORT INFORMATION
  Report Type: 
  Country: None (occurrence: None)
  Receive Date: 20040824
  Receipt Date: 20040811
  Transmission Date: 20050211
  Serious: Yes (Hospitalization)
  Sender: FDA-Public Use
  Company Number: US-JNJFOC-20040803867

PATIENT
  Sex: Female

DRUGS (3)
  1. REMICADE [Suspect]
     Indication: RHEUMATOID ARTHRITIS
     Dosage: 3 MG/KG, INTRAVENOUS
     Route: 042
     Dates: start: 20040701
  2. METHOTREXATE [Concomitant]
  3. STEROIDS (CORTICOSTEROID NOS) [Concomitant]

REACTIONS (3)
  - BLOOD PRESSURE DECREASED [None]
  - HEADACHE [None]
  - PULSE ABSENT [None]
